FAERS Safety Report 25587399 (Version 1)
Quarter: 2025Q3

REPORT INFORMATION
  Report Type: Spontaneous
  Country: US (occurrence: US)
  Receive Date: 20250721
  Receipt Date: 20250721
  Transmission Date: 20251021
  Serious: No
  Sender: MYLAN
  Company Number: US-MYLANLABS-2025M1059718

PATIENT
  Age: 66 Year
  Sex: Female
  Weight: 79.38 kg

DRUGS (4)
  1. ALPRAZOLAM [Suspect]
     Active Substance: ALPRAZOLAM
     Indication: Anxiety
     Dosage: 2.5 MILLIGRAM, QD (1 MG IN THE MORNING, 1/2 IN AFTERNOON, AND 1 MG AT NIGHT)
     Dates: start: 20250621
  2. ALPRAZOLAM [Suspect]
     Active Substance: ALPRAZOLAM
     Indication: Panic attack
     Dosage: 2.5 MILLIGRAM, QD (1 MG IN THE MORNING, 1/2 IN AFTERNOON, AND 1 MG AT NIGHT)
     Route: 048
     Dates: start: 20250621
  3. ALPRAZOLAM [Suspect]
     Active Substance: ALPRAZOLAM
     Dosage: 2.5 MILLIGRAM, QD (1 MG IN THE MORNING, 1/2 IN AFTERNOON, AND 1 MG AT NIGHT)
     Route: 048
     Dates: start: 20250621
  4. ALPRAZOLAM [Suspect]
     Active Substance: ALPRAZOLAM
     Dosage: 2.5 MILLIGRAM, QD (1 MG IN THE MORNING, 1/2 IN AFTERNOON, AND 1 MG AT NIGHT)
     Dates: start: 20250621

REACTIONS (5)
  - Feeling abnormal [Unknown]
  - Illness [Unknown]
  - Hypersensitivity [Unknown]
  - Withdrawal syndrome [Unknown]
  - Drug ineffective [Unknown]

NARRATIVE: CASE EVENT DATE: 20250601
